FAERS Safety Report 10425843 (Version 1)
Quarter: 2014Q3

REPORT INFORMATION
  Report Type: Spontaneous
  Country: GB (occurrence: GB)
  Receive Date: 20140903
  Receipt Date: 20140903
  Transmission Date: 20150326
  Serious: Yes (Congenital Anomaly)
  Sender: FDA-Public Use
  Company Number: GB-AUROBINDO-AUR-APL-2014-09154

PATIENT

DRUGS (1)
  1. CITALOPRAM [Suspect]
     Active Substance: CITALOPRAM HYDROBROMIDE
     Indication: DEPRESSION
     Dosage: 20 MG, ONCE A DAY
     Route: 064

REACTIONS (3)
  - Foetal exposure during pregnancy [Unknown]
  - Double outlet right ventricle [Unknown]
  - Maternal drugs affecting foetus [None]

NARRATIVE: CASE EVENT DATE: 20140627
